FAERS Safety Report 4984982-5 (Version None)
Quarter: 2006Q2

REPORT INFORMATION
  Report Type: 
  Country: None (occurrence: None)
  Receive Date: 20060426
  Receipt Date: 20060426
  Transmission Date: 20061013
  Serious: Yes (Death, Hospitalization)
  Sender: FDA-Public Use
  Company Number: None

PATIENT
  Age: 76 Year
  Sex: Female
  Weight: 62.5964 kg

DRUGS (2)
  1. NAPROXEN [Suspect]
     Dosage: 3-4 TABS  DAILY  PO
     Route: 048
  2. ASPIRIN [Suspect]
     Dosage: 81MG  DAILY  ORAL
     Route: 048

REACTIONS (2)
  - GASTROINTESTINAL HAEMORRHAGE [None]
  - LIVER DISORDER [None]
